FAERS Safety Report 11813229 (Version 1)
Quarter: 2015Q4

REPORT INFORMATION
  Report Type: Spontaneous
  Country: US (occurrence: None)
  Receive Date: 20151208
  Receipt Date: 20151208
  Transmission Date: 20160305
  Serious: Yes (Hospitalization)
  Sender: FDA-Public Use
  Company Number: None

PATIENT
  Age: 84 Year
  Sex: Male
  Weight: 75 kg

DRUGS (21)
  1. TOPROL XL [Concomitant]
     Active Substance: METOPROLOL SUCCINATE
  2. PERCOCET [Concomitant]
     Active Substance: ACETAMINOPHEN\OXYCODONE HYDROCHLORIDE
  3. TUMS [Concomitant]
     Active Substance: CALCIUM CARBONATE
  4. CLARITIN [Concomitant]
     Active Substance: LORATADINE
  5. APAP [Concomitant]
     Active Substance: ACETAMINOPHEN
  6. PRILOSEC [Concomitant]
     Active Substance: OMEPRAZOLE MAGNESIUM
  7. FLOVENT [Concomitant]
     Active Substance: FLUTICASONE PROPIONATE
  8. LIPITOR [Concomitant]
     Active Substance: ATORVASTATIN CALCIUM
  9. SYNTHROID [Concomitant]
     Active Substance: LEVOTHYROXINE SODIUM
  10. PERMACLEAR [Concomitant]
  11. ALBUTEROL. [Concomitant]
     Active Substance: ALBUTEROL
  12. VITD3 [Concomitant]
  13. FLONASE [Concomitant]
     Active Substance: FLUTICASONE PROPIONATE
  14. MAG HYD [Concomitant]
  15. AMARYL [Suspect]
     Active Substance: GLIMEPIRIDE
     Indication: DIABETES MELLITUS
     Route: 048
  16. XANAX [Concomitant]
     Active Substance: ALPRAZOLAM
  17. XARELTO [Concomitant]
     Active Substance: RIVAROXABAN
  18. LASIX [Concomitant]
     Active Substance: FUROSEMIDE
  19. DUONEB [Concomitant]
     Active Substance: ALBUTEROL SULFATE\IPRATROPIUM BROMIDE
  20. LIDODERM [Concomitant]
     Active Substance: LIDOCAINE
  21. IMODIUM [Concomitant]
     Active Substance: LOPERAMIDE HYDROCHLORIDE

REACTIONS (5)
  - Hypoglycaemia [None]
  - Diarrhoea [None]
  - Renal impairment [None]
  - Hypophagia [None]
  - Constipation [None]

NARRATIVE: CASE EVENT DATE: 20150309
